FAERS Safety Report 5191038-8 (Version None)
Quarter: 2006Q4

REPORT INFORMATION
  Report Type: 
  Country: None (occurrence: None)
  Receive Date: 20061218
  Receipt Date: 20061204
  Transmission Date: 20070319
  Serious: Yes (Death, Hospitalization)
  Sender: FDA-Public Use
  Company Number: 2006001874

PATIENT
  Age: 68 Year
  Sex: Male

DRUGS (9)
  1. ERLOTINIB (TABLET) [Suspect]
     Indication: PANCREATIC CARCINOMA
     Dosage: 150 MG (QD), ORAL
     Route: 048
     Dates: start: 20060720, end: 20060831
  2. BEVACIZUMAB (INJECTION FOR INFUSION) [Suspect]
     Indication: PANCREATIC CARCINOMA
     Dosage: 290 MG (Q 2 WKS), INTRAVENOUS
     Route: 042
     Dates: start: 20060720, end: 20060831
  3. GEMCITABINE [Suspect]
     Indication: PANCREATIC CARCINOMA
     Dosage: 1680 MG (EVERY 2 WEEKS)
     Dates: start: 20060720, end: 20060831
  4. FENTANYL [Concomitant]
  5. ENOXAPARIN SODIUM [Concomitant]
  6. GABAPENTINA (GABAPENTIN) [Concomitant]
  7. LEXATIN (BROMAZEPAM) [Concomitant]
  8. FORTASEC (LOPERAMIDE) [Concomitant]
  9. PRIMPERAN TAB [Concomitant]

REACTIONS (7)
  - ALANINE AMINOTRANSFERASE INCREASED [None]
  - ASPARTATE AMINOTRANSFERASE INCREASED [None]
  - BLOOD ALKALINE PHOSPHATASE INCREASED [None]
  - BLOOD BILIRUBIN INCREASED [None]
  - GALLBLADDER DISORDER [None]
  - JAUNDICE CHOLESTATIC [None]
  - MALIGNANT NEOPLASM PROGRESSION [None]
